FAERS Safety Report 5685296-0 (Version None)
Quarter: 2008Q1

REPORT INFORMATION
  Report Type: 
  Country: None (occurrence: None)
  Receive Date: 20080328
  Receipt Date: 20080317
  Transmission Date: 20080703
  Serious: Yes (Other)
  Sender: FDA-Public Use
  Company Number: US-PFIZER INC-2008024148

PATIENT
  Sex: Female

DRUGS (8)
  1. BEXTRA [Suspect]
  2. CELEBREX [Suspect]
     Indication: OSTEOARTHRITIS
     Route: 048
  3. CELEBREX [Suspect]
     Indication: ARTHRITIS
  4. PREDNISONE TABLET [Suspect]
  5. VIOXX [Suspect]
  6. OXYCONTIN [Concomitant]
     Indication: BACK PAIN
  7. PLAQUENIL [Concomitant]
  8. WELCHOL [Concomitant]

REACTIONS (10)
  - ACNE [None]
  - DRUG ERUPTION [None]
  - DRUG INEFFECTIVE [None]
  - ERYTHEMA MULTIFORME [None]
  - PERIPHERAL SENSORY NEUROPATHY [None]
  - PHOTODERMATOSIS [None]
  - RASH [None]
  - SEBORRHOEIC KERATOSIS [None]
  - TINEA CRURIS [None]
  - URTICARIA [None]
